FAERS Safety Report 4310953-8 (Version None)
Quarter: 2004Q1

REPORT INFORMATION
  Report Type: 
  Country: None (occurrence: None)
  Receive Date: 20040302
  Receipt Date: 20040219
  Transmission Date: 20041129
  Serious: No
  Sender: FDA-Public Use
  Company Number: 04P-163-0250676-00

PATIENT
  Age: 50 Year
  Sex: Male
  Weight: 90.7194 kg

DRUGS (6)
  1. DEPAKOTE ER [Suspect]
     Indication: BIPOLAR I DISORDER
     Dosage: 500 MG, 500 MG 2 TABS BID, PER ORAL; 500 MG, 3 IN 1 D, PER ORAL; 500 MG, 500 MG 2 TABS BID, PER ORAL
     Route: 048
     Dates: end: 20030101
  2. DEPAKOTE ER [Suspect]
     Indication: BIPOLAR I DISORDER
     Dosage: 500 MG, 500 MG 2 TABS BID, PER ORAL; 500 MG, 3 IN 1 D, PER ORAL; 500 MG, 500 MG 2 TABS BID, PER ORAL
     Route: 048
     Dates: start: 20030101, end: 20040201
  3. DEPAKOTE ER [Suspect]
     Indication: BIPOLAR I DISORDER
     Dosage: 500 MG, 500 MG 2 TABS BID, PER ORAL; 500 MG, 3 IN 1 D, PER ORAL; 500 MG, 500 MG 2 TABS BID, PER ORAL
     Route: 048
     Dates: start: 20040201
  4. GIODON [Suspect]
     Indication: BIPOLAR I DISORDER
     Dosage: 100 MG, 1 IN 1 D, PER ORAL; 40 MG, 1 IN 1 D, PER ORAL
     Route: 048
     Dates: start: 20030201, end: 20030201
  5. BLOOD PRESSURE MEDICATIONS [Concomitant]
  6. OLANZAPINE [Concomitant]

REACTIONS (8)
  - CONFUSIONAL STATE [None]
  - EXTRAPYRAMIDAL DISORDER [None]
  - FALL [None]
  - LETHARGY [None]
  - MUSCULOSKELETAL STIFFNESS [None]
  - OVERDOSE [None]
  - URINARY INCONTINENCE [None]
  - WEIGHT INCREASED [None]
